FAERS Safety Report 25953988 (Version 1)
Quarter: 2025Q4

REPORT INFORMATION
  Report Type: Spontaneous
  Country: EU (occurrence: EU)
  Receive Date: 20251023
  Receipt Date: 20251023
  Transmission Date: 20260117
  Serious: Yes (Other)
  Sender: BRISTOL-MYERS SQUIBB COMPANY
  Company Number: None

PATIENT
  Age: 41 Year
  Sex: Female
  Weight: 44 kg

DRUGS (5)
  1. ELIQUIS [Suspect]
     Active Substance: APIXABAN
     Indication: Deep vein thrombosis
     Dosage: 20 MG/DAY (IN 2 DOSES)
     Dates: start: 20251007, end: 20251014
  2. ELIQUIS [Suspect]
     Active Substance: APIXABAN
     Dosage: 10 MG/DAY (IN 2 DOSES)
     Dates: start: 20251015
  3. LEVOFLOXACIN [Suspect]
     Active Substance: LEVOFLOXACIN
     Indication: Osteitis
     Dates: start: 20251008, end: 20251015
  4. CLINDAMYCIN [Suspect]
     Active Substance: CLINDAMYCIN
     Indication: Osteitis
     Dosage: 1800 MG/D (IN 3 DOSES)
     Dates: start: 20251007, end: 20251015
  5. PANTOPRAZOLE [Suspect]
     Active Substance: PANTOPRAZOLE
     Indication: Product used for unknown indication
     Dosage: UNKNOWN
     Dates: start: 20251010, end: 20251015

REACTIONS (2)
  - Type I hypersensitivity [Recovering/Resolving]
  - Urticaria [Recovering/Resolving]

NARRATIVE: CASE EVENT DATE: 20251015
